FAERS Safety Report 5254471-1 (Version None)
Quarter: 2007Q1

REPORT INFORMATION
  Report Type: 
  Country: None (occurrence: None)
  Receive Date: 20070302
  Receipt Date: 20070215
  Transmission Date: 20070707
  Serious: Yes (Hospitalization)
  Sender: FDA-Public Use
  Company Number: US-AMGEN-US211845

PATIENT
  Age: 59 Year
  Sex: Female

DRUGS (4)
  1. PROCRIT [Suspect]
     Indication: ANAEMIA
     Route: 065
     Dates: start: 20050601, end: 20070213
  2. PREDNISONE [Concomitant]
     Route: 065
  3. NORVASC [Concomitant]
     Route: 065
  4. IRON [Concomitant]
     Route: 065

REACTIONS (4)
  - HAEMOGLOBIN DECREASED [None]
  - HYPERSENSITIVITY [None]
  - INFLUENZA LIKE ILLNESS [None]
  - SYNCOPE [None]
